FAERS Safety Report 23805090 (Version 1)
Quarter: 2024Q2

REPORT INFORMATION
  Report Type: Spontaneous
  Country: US (occurrence: US)
  Receive Date: 20240502
  Receipt Date: 20240502
  Transmission Date: 20240716
  Serious: No
  Sender: FDA-Public Use
  Company Number: US-ABBVIE-5740337

PATIENT
  Sex: Female

DRUGS (3)
  1. LATISSE [Suspect]
     Active Substance: BIMATOPROST
     Indication: Product used for unknown indication
     Route: 065
  2. LATISSE [Suspect]
     Active Substance: BIMATOPROST
     Dosage: 1 DROP PER APPLICATOR AND 1 APPLICATOR PER EYE?0.03%
     Route: 065
     Dates: start: 2023
  3. LATISSE [Suspect]
     Active Substance: BIMATOPROST
     Route: 065

REACTIONS (1)
  - Drug ineffective [Unknown]
